FAERS Safety Report 5404380-X (Version None)
Quarter: 2007Q3

REPORT INFORMATION
  Report Type: 
  Country: None (occurrence: None)
  Receive Date: 20070711
  Receipt Date: 20060814
  Transmission Date: 20080115
  Serious: Yes (Other)
  Sender: FDA-Public Use
  Company Number: 239570

PATIENT
  Age: 67 Year
  Sex: Female
  Weight: 71.7 kg

DRUGS (16)
  1. ACTIVELLA (NORETHISTERONE ACETATE, ESGTRADIOL HEMIHYDRATE) FILM-COATED [Suspect]
     Indication: MENOPAUSAL SYMPTOMS
     Dosage: ORAL
     Route: 048
     Dates: start: 20030301, end: 20030701
  2. PREMARIN [Suspect]
     Indication: MENOPAUSAL SYMPTOMS
     Dosage: 1.25 MG
     Dates: start: 19910101, end: 19970101
  3. MEDROXYPROGESTERONE [Suspect]
     Indication: MENOPAUSAL SYMPTOMS
     Dosage: 10 MG
     Dates: start: 19910101, end: 19970101
  4. PREMPRO [Suspect]
     Indication: MENOPAUSAL SYMPTOMS
     Dosage: 0.625 / 5 MG,
     Dates: start: 19970101, end: 20030101
  5. ESTRADERM [Concomitant]
  6. ESTRATEST (METHYTESTOSTERONE, ESTROGENS ESTERFIED) [Concomitant]
  7. ESTRACE VAGINAL (ESTRADIOL) [Concomitant]
  8. PRAVACHOL [Concomitant]
  9. ACCUPRIL [Concomitant]
  10. PRILOSEC /00661201/ (OMEPRAZOLE) [Concomitant]
  11. LISINOPRIL [Concomitant]
  12. LORAZEPAM [Concomitant]
  13. ZYRTEC [Concomitant]
  14. PAXIL CR [Concomitant]
  15. FOSAMAX [Concomitant]
  16. HYDROCHLOROTHIAZIDE [Concomitant]

REACTIONS (1)
  - BREAST CANCER [None]
